FAERS Safety Report 18103534 (Version 1)
Quarter: 2020Q3

REPORT INFORMATION
  Report Type: Report from Study
  Country: ZA (occurrence: ZA)
  Receive Date: 20200803
  Receipt Date: 20200803
  Transmission Date: 20201103
  Serious: Yes (Other)
  Sender: FDA-Public Use
  Company Number: NVSC2020ZA215323

PATIENT

DRUGS (1)
  1. ENTRESTO [Suspect]
     Active Substance: SACUBITRIL\VALSARTAN
     Indication: CARDIAC FAILURE
     Dosage: 50 MG, BID
     Route: 048

REACTIONS (8)
  - Cardiac failure [Unknown]
  - Fatigue [Unknown]
  - Pulmonary oedema [Unknown]
  - Glomerular filtration rate decreased [Unknown]
  - Atrial fibrillation [Unknown]
  - Dyspnoea [Unknown]
  - Joint swelling [Unknown]
  - Orthopnoea [Unknown]
